FAERS Safety Report 8823263 (Version 1)
Quarter: 2012Q4

REPORT INFORMATION
  Report Type: Report from Study
  Country: JP (occurrence: JP)
  Receive Date: 20121003
  Receipt Date: 20121003
  Transmission Date: 20130627
  Serious: No
  Sender: FDA-Public Use
  Company Number: JP-GLAXOSMITHKLINE-B0704133A

PATIENT
  Age: 61 Year
  Sex: Female
  Weight: 45 kg

DRUGS (2)
  1. TYKERB [Suspect]
     Indication: BREAST CANCER
     Route: 048
     Dates: start: 20101118, end: 20110113
  2. XELODA [Suspect]
     Route: 048
     Dates: start: 20101109, end: 20110113

REACTIONS (1)
  - Ataxia [Recovering/Resolving]
